FAERS Safety Report 12920603 (Version 1)
Quarter: 2016Q4

REPORT INFORMATION
  Report Type: Spontaneous
  Country: US (occurrence: US)
  Receive Date: 20161108
  Receipt Date: 20161108
  Transmission Date: 20170207
  Serious: Yes (Hospitalization)
  Sender: FDA-Public Use
  Company Number: US-BRISTOL-MYERS SQUIBB COMPANY-BMS-2016-088017

PATIENT
  Sex: Male

DRUGS (1)
  1. YERVOY [Suspect]
     Active Substance: IPILIMUMAB
     Indication: MALIGNANT MELANOMA
     Route: 042

REACTIONS (13)
  - Oropharyngeal pain [Recovered/Resolved]
  - Weight decreased [Unknown]
  - Dry throat [Unknown]
  - Sleep disorder [Unknown]
  - Pain in extremity [Unknown]
  - Pruritus [Unknown]
  - Eating disorder [Unknown]
  - Irritability [Unknown]
  - Intraocular pressure increased [Unknown]
  - Decreased appetite [Recovering/Resolving]
  - Colitis [Recovering/Resolving]
  - Headache [Unknown]
  - Diarrhoea [Unknown]
